FAERS Safety Report 8335554-6 (Version None)
Quarter: 2012Q2

REPORT INFORMATION
  Report Type: 
  Country: None (occurrence: None)
  Receive Date: 20120503
  Receipt Date: 20120425
  Transmission Date: 20120825
  Serious: Yes (Life-Threatening, Hospitalization)
  Sender: FDA-Public Use
  Company Number: KP-ROXANE LABORATORIES, INC.-2012-RO-01126RO

PATIENT
  Age: 56 Year
  Sex: Female

DRUGS (8)
  1. DEXAMETHASONE [Suspect]
     Indication: PROPHYLAXIS OF NAUSEA AND VOMITING
  2. NIFEDIPINE [Suspect]
     Dosage: 30 MG
  3. CYCLOPHOSPHAMIDE [Suspect]
     Indication: BREAST CANCER
     Dosage: 900 MG
     Route: 042
  4. ASPIRIN [Suspect]
     Dosage: 100 MG
  5. DOXORUBICIN HCL [Suspect]
     Indication: BREAST CANCER
     Dosage: 90 MG
     Route: 042
  6. PALONOSETRON [Suspect]
     Indication: PROPHYLAXIS OF NAUSEA AND VOMITING
  7. PROPRANOLOL [Suspect]
     Dosage: 40 MG
  8. ENALAPRIL MALEATE [Suspect]
     Dosage: 10 MG

REACTIONS (5)
  - HYPONATRAEMIA [None]
  - FLUID RETENTION [None]
  - CONVULSION [None]
  - DEPRESSED LEVEL OF CONSCIOUSNESS [None]
  - INCOHERENT [None]
